FAERS Safety Report 7126416-0 (Version None)
Quarter: 2010Q4

REPORT INFORMATION
  Report Type: 
  Country: None (occurrence: None)
  Receive Date: 20101129
  Receipt Date: 20101118
  Transmission Date: 20110411
  Serious: Yes (Hospitalization, Other)
  Sender: FDA-Public Use
  Company Number: GB-JNJFOC-20100901332

PATIENT
  Age: 35 Year
  Sex: Female
  Weight: 54 kg

DRUGS (21)
  1. NORETHISTERONE [Suspect]
     Indication: ILL-DEFINED DISORDER
     Route: 048
  2. MICONAZOLE [Suspect]
     Route: 048
  3. MICONAZOLE [Suspect]
     Indication: ILL-DEFINED DISORDER
     Route: 048
  4. ARIPIPRAZOLE [Suspect]
     Indication: ILL-DEFINED DISORDER
     Route: 065
  5. DIHYDROCODEINE [Suspect]
     Indication: ILL-DEFINED DISORDER
     Route: 065
  6. LAMICTAL [Suspect]
     Indication: EPILEPSY
     Route: 065
  7. LANSOPRAZOLE [Suspect]
     Indication: ILL-DEFINED DISORDER
     Route: 065
  8. PROPRANOLOL HYDROCHLORIDE [Suspect]
     Indication: ILL-DEFINED DISORDER
     Route: 065
  9. SERTRALINE [Suspect]
     Indication: ILL-DEFINED DISORDER
     Route: 065
  10. AMOXICILLIN [Concomitant]
     Indication: ILL-DEFINED DISORDER
     Route: 065
  11. BETAMETHASONE [Concomitant]
     Indication: ILL-DEFINED DISORDER
     Route: 065
  12. CHLORAMPHENICOL [Concomitant]
     Indication: ILL-DEFINED DISORDER
     Route: 065
  13. CLOBAZAM [Concomitant]
     Indication: ILL-DEFINED DISORDER
     Route: 065
  14. AMPICILLIN SODIUM/SULBACTAM SODIUM [Concomitant]
     Indication: ILL-DEFINED DISORDER
     Route: 065
  15. DICLOFENAC SODIUM [Concomitant]
     Indication: ILL-DEFINED DISORDER
     Route: 065
  16. FOLIC ACID [Concomitant]
     Indication: ILL-DEFINED DISORDER
     Route: 065
  17. LACTULOSE [Concomitant]
     Indication: ILL-DEFINED DISORDER
     Route: 065
  18. LIDOCAINE [Concomitant]
     Indication: ILL-DEFINED DISORDER
     Route: 065
  19. TPN [Concomitant]
     Indication: ILL-DEFINED DISORDER
     Route: 065
  20. OMEPRAZOLE [Concomitant]
     Indication: ILL-DEFINED DISORDER
     Route: 065
  21. PROCHLORPERAZINE [Concomitant]
     Indication: ILL-DEFINED DISORDER
     Route: 065

REACTIONS (6)
  - CHOLESTASIS OF PREGNANCY [None]
  - DRUG EXPOSURE DURING PREGNANCY [None]
  - EPILEPSY [None]
  - LIVE BIRTH [None]
  - PREGNANCY ON ORAL CONTRACEPTIVE [None]
  - PREMATURE LABOUR [None]
